FAERS Safety Report 6196634-7 (Version None)
Quarter: 2009Q2

REPORT INFORMATION
  Report Type: 
  Country: None (occurrence: None)
  Receive Date: 20090520
  Receipt Date: 20090513
  Transmission Date: 20091009
  Serious: Yes (Other)
  Sender: FDA-Public Use
  Company Number: A0757434A

PATIENT
  Sex: Female

DRUGS (2)
  1. WELLBUTRIN XL [Suspect]
     Indication: DEPRESSION
     Dosage: 300MG SEE DOSAGE TEXT
     Route: 048
     Dates: start: 20081022
  2. COFFEE [Concomitant]

REACTIONS (13)
  - APHASIA [None]
  - BINGE EATING [None]
  - CONFUSIONAL STATE [None]
  - DEPRESSIVE SYMPTOM [None]
  - DRUG INEFFECTIVE [None]
  - HEART RATE DECREASED [None]
  - ILL-DEFINED DISORDER [None]
  - INSOMNIA [None]
  - MENTAL IMPAIRMENT [None]
  - PSYCHOMOTOR HYPERACTIVITY [None]
  - PURGING [None]
  - RESPIRATORY RATE DECREASED [None]
  - THERAPEUTIC RESPONSE DECREASED [None]
